FAERS Safety Report 8176407 (Version 4)
Quarter: 2013Q3

REPORT INFORMATION
  Report Type: Report from Study
  Country: US (occurrence: US)
  Receive Date: 20111011
  Receipt Date: 20130912
  Transmission Date: 20140515
  Serious: Yes (Other)
  Sender: FDA-Public Use
  Company Number: US-ELI_LILLY_AND_COMPANY-US201109007955

PATIENT
  Age: 81 Year
  Sex: Female
  Weight: 76.64 kg

DRUGS (3)
  1. TERIPARATIDE [Suspect]
     Indication: OSTEOPOROSIS
     Dosage: 20 UG, QD
     Route: 058
  2. TERIPARATIDE [Suspect]
     Dosage: 20 UG, QD
     Route: 058
  3. TERIPARATIDE [Suspect]
     Dosage: 20 UG, UNK
     Dates: start: 201109

REACTIONS (8)
  - Deep vein thrombosis [Recovered/Resolved]
  - Alopecia [Unknown]
  - Tenderness [Unknown]
  - Pain [Unknown]
  - Erythema [Unknown]
  - Nasopharyngitis [Unknown]
  - Hypersensitivity [Unknown]
  - Arthritis [Unknown]
